FAERS Safety Report 13581188 (Version 1)
Quarter: 2017Q2

REPORT INFORMATION
  Report Type: Spontaneous
  Country: US (occurrence: US)
  Receive Date: 20170525
  Receipt Date: 20170525
  Transmission Date: 20170830
  Serious: No
  Sender: FDA-Public Use
  Company Number: US-PFIZER INC-2017227691

PATIENT
  Sex: Male

DRUGS (1)
  1. XELJANZ [Suspect]
     Active Substance: TOFACITINIB CITRATE
     Indication: RHEUMATOID ARTHRITIS
     Dosage: 5 MG, UNK
     Dates: start: 201512

REACTIONS (23)
  - Synovitis [Unknown]
  - Depression [Unknown]
  - Pain in extremity [Unknown]
  - Fatigue [Unknown]
  - Constipation [Unknown]
  - Arthralgia [Unknown]
  - Joint swelling [Unknown]
  - Joint crepitation [Unknown]
  - Dyspnoea exertional [Unknown]
  - Hypoaesthesia [Unknown]
  - Peripheral swelling [Unknown]
  - Weight decreased [Unknown]
  - Dry mouth [Unknown]
  - Gait disturbance [Unknown]
  - Dizziness [Unknown]
  - Grip strength decreased [Unknown]
  - Limb deformity [Unknown]
  - Musculoskeletal stiffness [Unknown]
  - Dry eye [Unknown]
  - Anxiety [Unknown]
  - Feeling abnormal [Unknown]
  - Joint warmth [Unknown]
  - Muscular weakness [Unknown]
